FAERS Safety Report 14526708 (Version 1)
Quarter: 2018Q1

REPORT INFORMATION
  Report Type: Spontaneous
  Country: FR (occurrence: FR)
  Receive Date: 20180213
  Receipt Date: 20180213
  Transmission Date: 20180509
  Serious: Yes (Other)
  Sender: FDA-Public Use
  Company Number: FR-ASTRAZENECA-2018SE09039

PATIENT
  Age: 87 Year
  Sex: Male

DRUGS (13)
  1. COVERAM [Concomitant]
     Active Substance: AMLODIPINE\PERINDOPRIL
  2. NOVONORM [Concomitant]
     Active Substance: REPAGLINIDE
  3. COLCHICINE. [Concomitant]
     Active Substance: COLCHICINE
  4. ESOMEPRAZOLE MAGNESIUM. [Suspect]
     Active Substance: ESOMEPRAZOLE MAGNESIUM
     Indication: PRODUCT USED FOR UNKNOWN INDICATION
     Dosage: UNSPECIFIED
     Route: 048
  5. DOLIPRANE [Concomitant]
     Active Substance: ACETAMINOPHEN
  6. XARELTO [Concomitant]
     Active Substance: RIVAROXABAN
  7. NOVORAPID [Concomitant]
     Active Substance: INSULIN ASPART
  8. ESOMEPRAZOLE [Suspect]
     Active Substance: ESOMEPRAZOLE
     Indication: PRODUCT USED FOR UNKNOWN INDICATION
     Dosage: UNSPECIFIED
     Route: 048
  9. LANTUS [Concomitant]
     Active Substance: INSULIN GLARGINE
  10. CORTANCYL [Concomitant]
     Active Substance: PREDNISONE
  11. XATRAL [Concomitant]
     Active Substance: ALFUZOSIN
  12. UROREC [Concomitant]
     Active Substance: SILODOSIN
  13. BIPROFENID [Concomitant]
     Active Substance: KETOPROFEN

REACTIONS (2)
  - Inappropriate antidiuretic hormone secretion [Recovering/Resolving]
  - Hyponatraemia [Recovering/Resolving]

NARRATIVE: CASE EVENT DATE: 20171203
